FAERS Safety Report 20671243 (Version 3)
Quarter: 2022Q2

REPORT INFORMATION
  Report Type: Report from Study
  Country: CA (occurrence: CA)
  Receive Date: 20220404
  Receipt Date: 20220609
  Transmission Date: 20220720
  Serious: Yes (Death)
  Sender: FDA-Public Use
  Company Number: CA-Taiho Oncology Inc-EU-2022-00859

PATIENT
  Age: 46 Year
  Sex: Male
  Weight: 121.5 kg

DRUGS (3)
  1. TIPIRACIL HYDROCHLORIDE\TRIFLURIDINE [Suspect]
     Active Substance: TIPIRACIL HYDROCHLORIDE\TRIFLURIDINE
     Indication: Oesophageal adenocarcinoma
     Dosage: CYCLE 1, 25 MG/M2 (60MG), ORALLY, BID FOR 10 DAYS
     Route: 048
     Dates: start: 20220309
  2. OXALIPLATIN [Suspect]
     Active Substance: OXALIPLATIN
     Indication: Oesophageal adenocarcinoma
     Dosage: CYCLE 1, 100MG/M2 (245 MG),  IV INFUSION OVER 2 HOURS ON A 28 DAYS CYCLE. DOSAGE
     Route: 042
     Dates: start: 20220309
  3. IRINOTECAN [Suspect]
     Active Substance: IRINOTECAN
     Indication: Oesophageal adenocarcinoma
     Dosage: CYCLE 1, 160 MG/M2 (390 MG), IV  INFUSION OVER 60-90 MINUTES ON A 28 DAYS CYCLE.
     Route: 042
     Dates: start: 20220309

REACTIONS (1)
  - Cardiac arrest [Fatal]

NARRATIVE: CASE EVENT DATE: 20220328
